FAERS Safety Report 13058081 (Version 1)
Quarter: 2016Q4

REPORT INFORMATION
  Report Type: Spontaneous
  Country: IT (occurrence: IT)
  Receive Date: 20161223
  Receipt Date: 20161223
  Transmission Date: 20170207
  Serious: Yes (Death)
  Sender: FDA-Public Use
  Company Number: PHHY2016IT176474

PATIENT
  Age: 56 Year
  Sex: Male

DRUGS (2)
  1. SATIVEX [Suspect]
     Active Substance: NABIXIMOLS
     Indication: MUSCLE SPASMS
     Dosage: 6 DF, QD
     Route: 048
     Dates: start: 20150908, end: 20160409
  2. GILENYA [Suspect]
     Active Substance: FINGOLIMOD HYDROCHLORIDE
     Indication: MULTIPLE SCLEROSIS
     Dosage: 0.5 MG, QD
     Route: 065
     Dates: start: 20110803

REACTIONS (1)
  - Cardiac arrest [Fatal]

NARRATIVE: CASE EVENT DATE: 20161202
